FAERS Safety Report 6456760-1 (Version None)
Quarter: 2009Q4

REPORT INFORMATION
  Report Type: 
  Country: None (occurrence: None)
  Receive Date: 20091120
  Receipt Date: 20091117
  Transmission Date: 20100525
  Serious: Yes (Hospitalization)
  Sender: FDA-Public Use
  Company Number: ALK_00911_2009

PATIENT
  Sex: Male
  Weight: 81.6475 kg

DRUGS (1)
  1. VIVITROL [Suspect]
     Indication: ALCOHOLISM
     Dosage: (380 MG 1X/MONTH INTRAMUSCULAR)
     Route: 030
     Dates: start: 20090519, end: 20090619

REACTIONS (9)
  - ALCOHOL WITHDRAWAL SYNDROME [None]
  - ANXIETY [None]
  - BLOOD GLUCOSE INCREASED [None]
  - CONVULSION [None]
  - FALL [None]
  - NAUSEA [None]
  - RESTLESSNESS [None]
  - TACHYCARDIA [None]
  - VOMITING [None]
